FAERS Safety Report 8574822 (Version 2)
Quarter: 2014Q1

REPORT INFORMATION
  Report Type: Spontaneous
  Country: US (occurrence: None)
  Receive Date: 20120323
  Receipt Date: 20130305
  Transmission Date: 20141002
  Serious: Yes (Hospitalization, Other)
  Sender: FDA-Public Use
  Company Number: 163-21880-11112807

PATIENT
  Age: 71 Year
  Sex: Male

DRUGS (27)
  1. REVLIMID [Suspect]
     Indication: PLASMA CELL MYELOMA
     Dosage: 10 MG, DAILY X 21, PO
     Route: 048
     Dates: start: 201005
  2. MELPHALAN [Suspect]
     Indication: PLASMA CELL MYELOMA
     Dosage: 14 MG, DAILY FOR 4 DAYS, PO
     Dates: start: 20100423
  3. PREDNISONE [Suspect]
     Indication: PLASMA CELL MYELOMA
     Route: 048
     Dates: start: 20100423
  4. METOPROLOL [Concomitant]
  5. ALLOPURINOL [Concomitant]
  6. FOLIC ACID [Concomitant]
  7. CIPROFLOXACIN [Concomitant]
  8. DIFLUCAN [Concomitant]
  9. ACYCLOVIR [Concomitant]
  10. POTASSIUM CHLORIDE [Concomitant]
  11. KEFLEX [Concomitant]
  12. WARFARIN SODIUM [Concomitant]
  13. NEURONTIN [Concomitant]
  14. SENOKOT-S (TABLETS) [Concomitant]
  15. HALOPERIDOL [Concomitant]
  16. PYRIDOXINE HCL (PYRIDOXINE HYDROCHLORIDE) (TABLETS) [Concomitant]
  17. OXYCODONE HYDROCHLORIDE [Concomitant]
  18. MIRALAX (MACROGOL) (POULICE OR PATCH) [Concomitant]
  19. PREVACID (LANSOPRAZOLE) (CAPSULES) [Concomitant]
  20. SENNA (TABLETS) [Concomitant]
  21. COLACE [Concomitant]
  22. ASPIRIN (ACETYLSALICYLIC ACID) [Concomitant]
  23. THIOCTIC ACID (TABLETS) [Concomitant]
  24. MAGNESIUM OXIDE (TABLETS) [Concomitant]
  25. FUROSEMIDE [Concomitant]
  26. AREDIA [Concomitant]
  27. PAMIDRONATE DISODIUM [Concomitant]

REACTIONS (2)
  - Full blood count decreased [None]
  - Infection [None]
